FAERS Safety Report 17499836 (Version 2)
Quarter: 2020Q2

REPORT INFORMATION
  Report Type: Report from Study
  Country: None (occurrence: DE)
  Receive Date: 20200304
  Receipt Date: 20200406
  Transmission Date: 20200713
  Serious: Yes (Hospitalization)
  Sender: FDA-Public Use
  Company Number: DE-ABBVIE-20K-062-3302672-00

PATIENT
  Age: 78 Year
  Sex: Female
  Weight: 42 kg

DRUGS (17)
  1. AMANTADIN [Concomitant]
     Active Substance: AMANTADINE
     Indication: PRODUCT USED FOR UNKNOWN INDICATION
  2. LEVODOPA [Concomitant]
     Active Substance: LEVODOPA
     Indication: PRODUCT USED FOR UNKNOWN INDICATION
  3. LORAZEPAM. [Concomitant]
     Active Substance: LORAZEPAM
     Indication: PRODUCT USED FOR UNKNOWN INDICATION
  4. ENTACAPONE. [Concomitant]
     Active Substance: ENTACAPONE
     Indication: PRODUCT USED FOR UNKNOWN INDICATION
  5. QUETIAPIN [Concomitant]
     Active Substance: QUETIAPINE
     Indication: PRODUCT USED FOR UNKNOWN INDICATION
  6. PIRIBEDIL [Concomitant]
     Active Substance: PIRIBEDIL
     Indication: DOPAMINERGIC DRUG THERAPY
  7. L-THYROX [Concomitant]
     Active Substance: LEVOTHYROXINE SODIUM
     Indication: PRODUCT USED FOR UNKNOWN INDICATION
  8. SPASMEX [Concomitant]
     Indication: PRODUCT USED FOR UNKNOWN INDICATION
  9. STALEVO [Concomitant]
     Active Substance: CARBIDOPA\ENTACAPONE\LEVODOPA
     Indication: PRODUCT USED FOR UNKNOWN INDICATION
  10. DUODOPA [Suspect]
     Active Substance: CARBIDOPA\LEVODOPA
     Indication: PARKINSON^S DISEASE
     Dosage: MD 7.0 ML; CRD 3.2 ML/H, ED 2.0 ML
     Route: 050
     Dates: start: 20190405
  11. MELPERON [Concomitant]
     Active Substance: MELPERONE
     Indication: PRODUCT USED FOR UNKNOWN INDICATION
  12. VIGANTOL [Concomitant]
     Indication: PRODUCT USED FOR UNKNOWN INDICATION
  13. NOVALGIN [Concomitant]
     Indication: PRODUCT USED FOR UNKNOWN INDICATION
  14. IRON [Concomitant]
     Active Substance: IRON
     Indication: SERUM FERRITIN DECREASED
  15. MACROGOL [Concomitant]
     Active Substance: POLYETHYLENE GLYCOLS
     Indication: PRODUCT USED FOR UNKNOWN INDICATION
  16. PERGOLID [Concomitant]
     Active Substance: PERGOLIDE MESYLATE
     Indication: DOPAMINERGIC DRUG THERAPY
  17. MADOPAR [Concomitant]
     Active Substance: BENSERAZIDE HYDROCHLORIDE\LEVODOPA
     Indication: PRODUCT USED FOR UNKNOWN INDICATION

REACTIONS (30)
  - Orthostatic hypotension [Unknown]
  - Movement disorder [Unknown]
  - Cognitive disorder [Unknown]
  - Malnutrition [Unknown]
  - Upper motor neurone lesion [Unknown]
  - Dysdiadochokinesis [Unknown]
  - Disorientation [Unknown]
  - Nocturia [Unknown]
  - Fine motor skill dysfunction [Unknown]
  - Emotional disorder [Unknown]
  - Frontotemporal dementia [Unknown]
  - Lateropulsion [Unknown]
  - Dysgraphia [Unknown]
  - Depressed mood [Unknown]
  - Abnormal behaviour [Unknown]
  - Propulsive gait [Unknown]
  - Bradyphrenia [Unknown]
  - Dysarthria [Unknown]
  - Rapid eye movement sleep behaviour disorder [Unknown]
  - Urge incontinence [Unknown]
  - Therapeutic product effect variable [Unknown]
  - Posture abnormal [Unknown]
  - Salivary hypersecretion [Unknown]
  - Constipation [Unknown]
  - General physical health deterioration [Unknown]
  - Hyposmia [Unknown]
  - Fall [Not Recovered/Not Resolved]
  - Chills [Unknown]
  - Gait disturbance [Unknown]
  - Hyperreflexia [Unknown]

NARRATIVE: CASE EVENT DATE: 2020
